FAERS Safety Report 6532864-X (Version None)
Quarter: 2010Q1

REPORT INFORMATION
  Report Type: 
  Country: None (occurrence: None)
  Receive Date: 20100111
  Receipt Date: 20091214
  Transmission Date: 20100710
  Serious: No
  Sender: FDA-Public Use
  Company Number: US-BAYER-200917777BCC

PATIENT
  Age: 84 Year
  Sex: Male
  Weight: 86 kg

DRUGS (12)
  1. ALEVE (CAPLET) [Suspect]
     Indication: ARTHRALGIA
     Dosage: AS USED: 440/220 MG  UNIT DOSE: 220 MG
     Route: 048
     Dates: start: 20091101
  2. PLAVIX [Concomitant]
     Route: 065
  3. FOSAMAX [Concomitant]
     Route: 065
  4. ASPIRIN [Concomitant]
     Route: 065
  5. LIPITOR [Concomitant]
     Route: 065
  6. CALCIUM [Concomitant]
     Route: 065
  7. CENTRUM SILVER [Concomitant]
     Route: 065
  8. GLUCOSAMINE [Concomitant]
     Route: 065
  9. METOPROLOL [Concomitant]
     Route: 065
  10. PROTONIX [Concomitant]
     Route: 065
  11. DILANTIN [Concomitant]
     Route: 065
  12. FISH OIL [Concomitant]
     Route: 065

REACTIONS (1)
  - DIZZINESS POSTURAL [None]
